FAERS Safety Report 4676474-8 (Version None)
Quarter: 2005Q2

REPORT INFORMATION
  Report Type: 
  Country: None (occurrence: None)
  Receive Date: 20050527
  Receipt Date: 20050517
  Transmission Date: 20051028
  Serious: Yes (Other)
  Sender: FDA-Public Use
  Company Number: US-JNJFOC-20050504423

PATIENT
  Age: 21 Year
  Sex: Male
  Weight: 58.97 kg

DRUGS (1)
  1. CONCERTA [Suspect]
     Indication: ATTENTION DEFICIT/HYPERACTIVITY DISORDER
     Route: 049

REACTIONS (2)
  - ANOREXIA [None]
  - WEIGHT DECREASED [None]
